FAERS Safety Report 12337898 (Version 3)
Quarter: 2016Q2

REPORT INFORMATION
  Report Type: Report from Study
  Country: US (occurrence: US)
  Receive Date: 20160505
  Receipt Date: 20160616
  Transmission Date: 20160815
  Serious: Yes (Hospitalization, Other)
  Sender: FDA-Public Use
  Company Number: US-GILEAD-2016-0212013

PATIENT
  Age: 74 Year
  Sex: Female

DRUGS (2)
  1. AMBRISENTAN [Suspect]
     Active Substance: AMBRISENTAN
     Indication: PULMONARY HYPERTENSION
     Dosage: 5 MG, QD
     Route: 065
     Dates: start: 20080918
  2. TYVASO [Concomitant]
     Active Substance: TREPROSTINIL

REACTIONS (4)
  - Pulmonary arterial hypertension [Unknown]
  - Pain in extremity [Recovered/Resolved]
  - Cardiac disorder [Unknown]
  - Oedema peripheral [Recovered/Resolved]
